FAERS Safety Report 9511585 (Version 1)
Quarter: 2013Q1

REPORT INFORMATION
  Report Type: Spontaneous
  Country: US (occurrence: None)
  Receive Date: 20130305
  Receipt Date: 20130305
  Transmission Date: 20140127
  Serious: Yes (Other)
  Sender: FDA-Public Use
  Company Number: 163-21880-12030554

PATIENT
  Age: 85 Year
  Sex: Female
  Weight: 63.5 kg

DRUGS (24)
  1. REVLIMID [Suspect]
     Indication: PLASMA CELL MYELOMA
     Dosage: 25 MG, 1 IN 1 D, PO
     Route: 048
     Dates: start: 20110331
  2. AMBIEN (ZOLPIDEM TARTRATE) (UNKNOWN) [Concomitant]
  3. AMITRIPTYLINE (AMITRIPTYLINE) (UNKNOWN) [Concomitant]
  4. ASPIRIN (ACETYLSALICYLIC ACID) (UNKNOWN) (ACETYLSALICYLIC ACID) [Concomitant]
  5. BIDIL (BIDIL) (UNKNOWN) [Concomitant]
  6. CATAPRES (CLONIDINE) (POULTICE OR PATCH) [Concomitant]
  7. CYMBALTA (DULOXETINE HYDROCHLORIDE) (UNKNOWN) [Concomitant]
  8. DEXAMETHASONE (DEXAMETHASONE) (UNKNOWN) [Concomitant]
  9. DIOVAN (VALSARTAN) (UNKNOWN) [Concomitant]
  10. FISH OIL (FISH OIL) (UNKNOWN) [Concomitant]
  11. KEPPRA (LEVETIRACETAM) (UNKNOWN) [Concomitant]
  12. KLOR-CON (POTASSIUM CHLORIDE) (UNKNOWN) [Concomitant]
  13. LISINOPRIL (LISINOPRIL) (UNKNOWN) [Concomitant]
  14. MEGACE (MEGESTROL ACETATE) (UNKNOWN) [Concomitant]
  15. NORVASC (AMLODIPINE BESILATE) (UNKNOWN) [Concomitant]
  16. PATANOL (OLOPATADINE HYDROCHLORIDE) (DROPS) [Concomitant]
  17. PERPHENAZINE (PERPHENAZINE) (UNKNOWN) [Concomitant]
  18. PERSANTINE (DIPYRIDAMOLE) (UNKNOWN) [Concomitant]
  19. PRILOSEC (OMEPRAZOLE) (UNKNOWN) [Concomitant]
  20. PROCRIT [Concomitant]
  21. TRAZODONE (TRAZODONE) (UNKNOWN) (TRAZODONE) [Concomitant]
  22. VITAMIN C [Concomitant]
  23. VITAMIN D3 (COLECALCIFEROL) (UNKNOWN) [Concomitant]
  24. XANAX (ALPRAZOLAM) (UNKNOWN) [Concomitant]

REACTIONS (1)
  - Renal impairment [None]
